FAERS Safety Report 7971634-2 (Version None)
Quarter: 2011Q4

REPORT INFORMATION
  Report Type: 
  Country: None (occurrence: None)
  Receive Date: 20111212
  Receipt Date: 20111201
  Transmission Date: 20120403
  Serious: Yes (Other)
  Sender: FDA-Public Use
  Company Number: US-ASTRAZENECA-2010SE30745

PATIENT
  Sex: Female

DRUGS (10)
  1. NASONEX [Concomitant]
  2. NABUMETONE [Concomitant]
  3. ZOLPIDEM TARTRATE [Concomitant]
  4. DIOVAN HCT [Concomitant]
     Dosage: 80-12.5 MG
  5. ARIMIDEX [Suspect]
     Route: 048
  6. NEXIUM [Suspect]
     Route: 048
  7. ADVAIR DISKUS 100/50 [Concomitant]
     Dosage: 100-50 UG
  8. PRILOSEC [Suspect]
     Route: 048
  9. CRESTOR [Suspect]
     Route: 048
  10. KLOR-CON [Concomitant]
     Dosage: 10 MEQ

REACTIONS (3)
  - BREAST CYST [None]
  - BREAST CANCER [None]
  - GASTROOESOPHAGEAL REFLUX DISEASE [None]
